FAERS Safety Report 25331769 (Version 2)
Quarter: 2025Q3

REPORT INFORMATION
  Report Type: Spontaneous
  Country: US (occurrence: US)
  Receive Date: 20250519
  Receipt Date: 20250715
  Transmission Date: 20251020
  Serious: No
  Sender: BAYER HEALTHCARE PHARMACEUTICALS INC.
  Company Number: US-BAYER-2025A064361

PATIENT
  Age: 54 Year
  Sex: Female
  Weight: 125 kg

DRUGS (1)
  1. CLIMARA PRO [Suspect]
     Active Substance: ESTRADIOL\LEVONORGESTREL
     Indication: Hormone replacement therapy
     Route: 062
     Dates: start: 20250411

REACTIONS (6)
  - Device adhesion issue [None]
  - Wrong technique in device usage process [None]
  - Hot flush [None]
  - Poor quality sleep [None]
  - Product physical issue [None]
  - Night sweats [None]

NARRATIVE: CASE EVENT DATE: 20250101
